FAERS Safety Report 7980661-0 (Version None)
Quarter: 2011Q4

REPORT INFORMATION
  Report Type: 
  Country: None (occurrence: None)
  Receive Date: 20111214
  Receipt Date: 20111208
  Transmission Date: 20120403
  Serious: Yes (Other)
  Sender: FDA-Public Use
  Company Number: US-PFIZER INC-2011118244

PATIENT
  Sex: Female

DRUGS (3)
  1. PROTONIX [Suspect]
     Dosage: UNK
  2. LYRICA [Suspect]
     Indication: RESTLESS LEGS SYNDROME
     Dosage: 75 MG, 2X/DAY
     Route: 048
     Dates: start: 20080301
  3. ZOLOFT [Suspect]
     Dosage: UNK

REACTIONS (1)
  - ATROPHY [None]
